FAERS Safety Report 9292473 (Version 2)
Quarter: 2013Q2

REPORT INFORMATION
  Report Type: Spontaneous
  Country: US (occurrence: US)
  Receive Date: 20130516
  Receipt Date: 20130520
  Transmission Date: 20140414
  Serious: Yes (Hospitalization, Other)
  Sender: FDA-Public Use
  Company Number: US-PFIZER INC-2013146906

PATIENT
  Age: 43 Year
  Sex: Female
  Weight: 65.76 kg

DRUGS (6)
  1. TOVIAZ [Suspect]
     Indication: HYPERTONIC BLADDER
     Dosage: 4 MG, 1X/DAY
     Dates: start: 20130415
  2. AMOXICILLIN/CLAVULANIC ACID [Suspect]
     Indication: CYSTITIS
     Dosage: 875/125 MG, 2X/DAY
     Dates: start: 20130409
  3. AMOXICILLIN/CLAVULANIC ACID [Suspect]
     Dosage: 875/125 MG, 2X/DAY
     Dates: start: 20130508
  4. CELEXA [Suspect]
     Indication: ANXIETY
     Dosage: 10 MG, 1X/DAY
     Dates: start: 20130409
  5. CELEXA [Suspect]
     Indication: DEPRESSION
     Dosage: 20 MG, 1X/DAY
     Dates: start: 201304, end: 20130425
  6. ATIVAN [Concomitant]
     Indication: ANXIETY
     Dosage: 0.5 MG, AS NEEDED

REACTIONS (9)
  - Drug ineffective [Unknown]
  - Cystitis [Not Recovered/Not Resolved]
  - Drug ineffective [Unknown]
  - Drug dose omission [Unknown]
  - Drug withdrawal syndrome [Recovering/Resolving]
  - Feeling abnormal [Recovering/Resolving]
  - Agitation [Recovering/Resolving]
  - Insomnia [Recovering/Resolving]
  - Pollakiuria [Unknown]
